FAERS Safety Report 10218699 (Version 1)
Quarter: 2014Q2

REPORT INFORMATION
  Report Type: Spontaneous
  Country: US (occurrence: None)
  Receive Date: 20140604
  Receipt Date: 20140604
  Transmission Date: 20141212
  Serious: No
  Sender: FDA-Public Use
  Company Number: None

PATIENT
  Age: 37 Year
  Sex: Female
  Weight: 58.97 kg

DRUGS (1)
  1. SERTRALINE 50 MG [Suspect]
     Indication: ANXIETY
     Dosage: 1/2 PILL ONCE DAILY TAKEN BY MOUTH
     Route: 048
     Dates: start: 20140512, end: 20140523

REACTIONS (13)
  - Anxiety [None]
  - Depression [None]
  - Tachyphrenia [None]
  - Self-injurious ideation [None]
  - Agitation [None]
  - Hyperhidrosis [None]
  - Tremor [None]
  - Decreased appetite [None]
  - Dizziness [None]
  - Insomnia [None]
  - Night sweats [None]
  - Nervousness [None]
  - Affective disorder [None]
